FAERS Safety Report 8139994-X (Version None)
Quarter: 2012Q1

REPORT INFORMATION
  Report Type: 
  Country: None (occurrence: None)
  Receive Date: 20120215
  Receipt Date: 20120209
  Transmission Date: 20120608
  Serious: Yes (Hospitalization, Other)
  Sender: FDA-Public Use
  Company Number: US-MERCK-1202USA01515

PATIENT
  Age: 78 Year
  Sex: Female
  Weight: 47 kg

DRUGS (19)
  1. FORTEO [Suspect]
     Route: 051
     Dates: start: 20091201
  2. FORTEO [Suspect]
     Route: 051
     Dates: start: 20091201
  3. FORTEO [Suspect]
     Route: 051
     Dates: start: 20091201
  4. PREDNISONE [Concomitant]
     Route: 065
  5. ADVAIR DISKUS 100/50 [Concomitant]
     Route: 065
  6. ATROVENT [Concomitant]
     Route: 065
  7. VENTOLIN [Concomitant]
     Route: 065
  8. FORTEO [Suspect]
     Route: 051
     Dates: start: 20091201
  9. CALCIUM (UNSPECIFIED) [Concomitant]
     Route: 065
  10. OXYGEN [Concomitant]
     Route: 065
  11. FORTEO [Suspect]
     Route: 051
     Dates: start: 20091201
  12. FORTEO [Suspect]
     Indication: OSTEOPOROSIS
     Route: 051
     Dates: start: 20091201
  13. FORTEO [Suspect]
     Route: 051
     Dates: start: 20091201
  14. PLAVIX [Concomitant]
     Route: 065
  15. ASPIRIN [Concomitant]
     Route: 065
  16. FOSAMAX [Suspect]
     Route: 048
  17. FORTEO [Suspect]
     Route: 051
     Dates: start: 20091201
  18. FORTEO [Suspect]
     Route: 051
     Dates: start: 20091201
  19. DIURETIC (UNSPECIFIED) [Concomitant]
     Route: 065

REACTIONS (16)
  - BLOOD CALCIUM INCREASED [None]
  - MALAISE [None]
  - CARDIAC DISORDER [None]
  - BURNING SENSATION [None]
  - MYOCARDIAL INFARCTION [None]
  - FALL [None]
  - BACTERIAL INFECTION [None]
  - STRESS [None]
  - INJURY [None]
  - NODULE [None]
  - JAW DISORDER [None]
  - LUNG INFECTION [None]
  - OXYGEN SATURATION INCREASED [None]
  - CHEST DISCOMFORT [None]
  - PERIORBITAL HAEMATOMA [None]
  - DYSPNOEA [None]
